FAERS Safety Report 13997693 (Version 2)
Quarter: 2017Q4

REPORT INFORMATION
  Report Type: Spontaneous
  Country: US (occurrence: US)
  Receive Date: 20170921
  Receipt Date: 20171023
  Transmission Date: 20180321
  Serious: Yes (Other)
  Sender: FDA-Public Use
  Company Number: US-SA-2017SA172036

PATIENT
  Sex: Female

DRUGS (1)
  1. LANTUS [Suspect]
     Active Substance: INSULIN GLARGINE
     Dosage: DOSE:25 UNIT(S)
     Route: 051

REACTIONS (4)
  - Product use issue [Unknown]
  - Blood glucose increased [Unknown]
  - Drug dose omission [Unknown]
  - Blindness unilateral [Unknown]
